FAERS Safety Report 10172576 (Version 1)
Quarter: 2014Q2

REPORT INFORMATION
  Report Type: Spontaneous
  Country: US (occurrence: US)
  Receive Date: 20140515
  Receipt Date: 20140515
  Transmission Date: 20141212
  Serious: No
  Sender: FDA-Public Use
  Company Number: US-009507513-1405USA005561

PATIENT
  Sex: Male

DRUGS (1)
  1. CLARITIN [Suspect]
     Indication: HYPERSENSITIVITY
     Dosage: 1 DF, QD
     Route: 048
     Dates: start: 2014

REACTIONS (1)
  - Drug effect incomplete [Unknown]
